FAERS Safety Report 23463406 (Version 2)
Quarter: 2024Q1

REPORT INFORMATION
  Report Type: Report from Study
  Country: JP (occurrence: JP)
  Receive Date: 20240131
  Receipt Date: 20240320
  Transmission Date: 20240409
  Serious: Yes (Other)
  Sender: FDA-Public Use
  Company Number: JP-BEH-2024167760

PATIENT
  Age: 50 Year
  Sex: Female
  Weight: 55.8 kg

DRUGS (4)
  1. PRIVIGEN [Suspect]
     Active Substance: HUMAN IMMUNOGLOBULIN G
     Indication: Chronic inflammatory demyelinating polyradiculoneuropathy
     Dosage: 250 MILLILITER, QD
     Route: 042
     Dates: start: 20210426, end: 20210427
  2. PRIVIGEN [Suspect]
     Active Substance: HUMAN IMMUNOGLOBULIN G
     Dosage: 550 MILLILITER, SINGLE
     Route: 042
     Dates: start: 20210726, end: 20210726
  3. PRIVIGEN [Suspect]
     Active Substance: HUMAN IMMUNOGLOBULIN G
     Dosage: 500 MILLILITER, QD
     Route: 042
     Dates: start: 20211108, end: 20211109
  4. HIZENTRA [Suspect]
     Active Substance: HUMAN IMMUNOGLOBULIN G
     Indication: Chronic inflammatory demyelinating polyradiculoneuropathy
     Dosage: 12 GRAM, QW
     Route: 058
     Dates: start: 20200519

REACTIONS (1)
  - Therapeutic product effect incomplete [Recovering/Resolving]

NARRATIVE: CASE EVENT DATE: 20211001
